FAERS Safety Report 12431618 (Version 2)
Quarter: 2016Q2

REPORT INFORMATION
  Report Type: Report from Study
  Country: US (occurrence: US)
  Receive Date: 20160603
  Receipt Date: 20160627
  Transmission Date: 20160815
  Serious: Yes (Hospitalization, Other)
  Sender: FDA-Public Use
  Company Number: US-SHIRE-US201606609

PATIENT
  Age: 24 Year
  Sex: Male
  Weight: 55.33 kg

DRUGS (10)
  1. DIPHENOXYLATE HYDROCHLORIDE AND ATROPINE SULFATE [Concomitant]
     Active Substance: ATROPINE SULFATE\DIPHENOXYLATE HYDROCHLORIDE
     Indication: DIARRHOEA
     Dosage: 6 TABS, 1X/DAY:QD
     Route: 048
  2. FLUOXETINE HCL [Concomitant]
     Active Substance: FLUOXETINE HYDROCHLORIDE
     Indication: DEPRESSION
     Dosage: 10 MG, 1X/DAY:QD
     Route: 048
  3. GABAPENTIN. [Concomitant]
     Active Substance: GABAPENTIN
     Indication: DEPRESSION
     Dosage: 300 MG, 1X/DAY:QD
     Route: 048
  4. MEROPENEM. [Concomitant]
     Active Substance: MEROPENEM
     Indication: BACTERASCITES
     Dosage: 1 DF, UNKNOWN
     Route: 042
     Dates: start: 20140301
  5. URSODIOL. [Concomitant]
     Active Substance: URSODIOL
     Indication: CHOLELITHIASIS
     Dosage: 300 MG, 3X/DAY:TID
     Route: 048
  6. PSYLLIUM HUSK                      /00029102/ [Concomitant]
     Indication: NUTRITIONAL SUPPLEMENTATION
     Dosage: 3.4 G, 3X/DAY:TID
     Route: 048
  7. VITAMIN D                          /00107901/ [Concomitant]
     Active Substance: ERGOCALCIFEROL
     Indication: VITAMIN D DEFICIENCY
     Dosage: 1 TABS, 1X/DAY:QD
     Route: 048
  8. ERTAPENEM [Concomitant]
     Active Substance: ERTAPENEM
     Indication: BACTERASCITES
     Dosage: 1 DF, UNKNOWN
     Route: 065
     Dates: start: 20140317
  9. TEDUGLUTIDE [Suspect]
     Active Substance: TEDUGLUTIDE
     Indication: SHORT-BOWEL SYNDROME
     Dosage: 2.77 MG, 1X/DAY:QD
     Route: 058
     Dates: start: 20131223
  10. TPN [Concomitant]
     Active Substance: AMINO ACIDS\DEXTROSE\ELECTROLYTES NOS\SOYBEAN OIL
     Indication: NUTRITIONAL SUPPLEMENTATION
     Dosage: UNK UNK, UNKNOWN
     Route: 051

REACTIONS (2)
  - Fungaemia [Not Recovered/Not Resolved]
  - Bacteraemia [Not Recovered/Not Resolved]

NARRATIVE: CASE EVENT DATE: 20160510
